FAERS Safety Report 23725303 (Version 2)
Quarter: 2024Q2

REPORT INFORMATION
  Report Type: Spontaneous
  Country: US (occurrence: US)
  Receive Date: 20240410
  Receipt Date: 20240516
  Transmission Date: 20240716
  Serious: No
  Sender: FDA-Public Use
  Company Number: US-JNJFOC-20240409560

PATIENT
  Age: 27 Year
  Sex: Male

DRUGS (1)
  1. RISPERDAL [Suspect]
     Active Substance: RISPERIDONE
     Indication: Product used for unknown indication
     Route: 048

REACTIONS (2)
  - Liquid product physical issue [Unknown]
  - Poor quality product administered [Unknown]

NARRATIVE: CASE EVENT DATE: 20240402
